FAERS Safety Report 9086136 (Version 1)
Quarter: 2013Q1

REPORT INFORMATION
  Report Type: Spontaneous
  Country: US (occurrence: US)
  Receive Date: 20130201
  Receipt Date: 20130201
  Transmission Date: 20140127
  Serious: No
  Sender: FDA-Public Use
  Company Number: US-PFIZER INC-2013041085

PATIENT
  Age: 50 Year
  Sex: Female
  Weight: 90.25 kg

DRUGS (2)
  1. NEURONTIN [Suspect]
     Indication: NERVE INJURY
     Dosage: 1200 MG (THREE CAPSULES OF 400MG), 3X/DAY
     Route: 048
     Dates: start: 1996
  2. GABAPENTIN [Suspect]
     Indication: NERVE INJURY
     Dosage: 1200 MG (THREE CAPSULES OF 400MG), 3X/DAY
     Route: 048

REACTIONS (1)
  - Pain [Unknown]
